FAERS Safety Report 10759864 (Version 1)
Quarter: 2015Q1

REPORT INFORMATION
  Report Type: Report from Study
  Country: DE (occurrence: DE)
  Receive Date: 20150203
  Receipt Date: 20150203
  Transmission Date: 20150721
  Serious: Yes (Disabling)
  Sender: FDA-Public Use
  Company Number: DE-MYLANLABS-2015M1002862

PATIENT

DRUGS (5)
  1. RISPERIDONE. [Suspect]
     Active Substance: RISPERIDONE
     Indication: DELUSIONAL DISORDER, PERSECUTORY TYPE
     Dosage: TITRATED UP TO 6MG/DAY
     Route: 065
  2. ARIPIPRAZOLE. [Concomitant]
     Active Substance: ARIPIPRAZOLE
     Indication: DEPRESSION
     Dosage: TITRATED UP TO 30MG/DAY
     Route: 065
  3. CLOZAPINE. [Suspect]
     Active Substance: CLOZAPINE
     Indication: DELUSIONAL DISORDER, PERSECUTORY TYPE
     Dosage: TITRATED UP TO 25MG/DAY
     Route: 065
  4. QUETIAPINE [Suspect]
     Active Substance: QUETIAPINE
     Indication: DELUSIONAL DISORDER, PERSECUTORY TYPE
     Dosage: TITRATED UP TO 100MG/DAY
     Route: 065
  5. OLANZAPINE. [Suspect]
     Active Substance: OLANZAPINE
     Indication: DELUSIONAL DISORDER, PERSECUTORY TYPE
     Dosage: TITRATED UP TO 30 MG/DAY
     Route: 065

REACTIONS (5)
  - Tremor [Unknown]
  - Oedema peripheral [Unknown]
  - Fatigue [Unknown]
  - Visual impairment [Unknown]
  - Drug ineffective [Unknown]
